FAERS Safety Report 5820153-8 (Version None)
Quarter: 2008Q3

REPORT INFORMATION
  Report Type: 
  Country: None (occurrence: None)
  Receive Date: 20080724
  Receipt Date: 20080715
  Transmission Date: 20090109
  Serious: Yes (Other)
  Sender: FDA-Public Use
  Company Number: PHEH2006US12867

PATIENT
  Sex: Female

DRUGS (12)
  1. LESCOL [Suspect]
     Indication: HYPERLIPIDAEMIA
     Dosage: UNK
     Dates: start: 19960101
  2. NORVASC [Suspect]
     Indication: HYPERTENSION
     Dosage: UNK
     Dates: start: 19960101
  3. LIPITOR [Suspect]
  4. TOPROL-XL [Concomitant]
     Dosage: 100 MG, QD
  5. AMILORIDE HCL AND HYDROCHLOROTHIAZIDE [Concomitant]
     Dosage: 5/50 MG
  6. LEVOXYL [Concomitant]
     Dosage: 0.1 MG, QD
  7. ACETYLSALICYLIC ACID SRT [Concomitant]
     Dosage: 81 MG, QD
  8. CALCIUM WITH VITAMIN D [Concomitant]
     Dosage: 600 MG, BID
  9. STOOL SOFTENER [Concomitant]
     Dosage: UNK
  10. LOVAZA [Concomitant]
  11. VITAMIN TAB [Concomitant]
  12. DIOVAN HCT [Concomitant]
     Dosage: 160 MG VAL/ 25 MG HCT QPM

REACTIONS (17)
  - ABDOMINAL PAIN [None]
  - ANGIOGRAM [None]
  - ANGIOPLASTY [None]
  - CEREBROVASCULAR ACCIDENT [None]
  - DEAFNESS [None]
  - ENDARTERECTOMY [None]
  - GAIT DISTURBANCE [None]
  - HERNIA [None]
  - INTERMITTENT CLAUDICATION [None]
  - JOINT SWELLING [None]
  - MOVEMENT DISORDER [None]
  - MUSCLE DISORDER [None]
  - NAUSEA [None]
  - PAIN IN EXTREMITY [None]
  - SPEECH DISORDER [None]
  - STENT PLACEMENT [None]
  - VERTIGO [None]
